FAERS Safety Report 14825322 (Version 6)
Quarter: 2019Q3

REPORT INFORMATION
  Report Type: Spontaneous
  Country: US (occurrence: US)
  Receive Date: 20180430
  Receipt Date: 20190923
  Transmission Date: 20191004
  Serious: Yes (Other)
  Sender: FDA-Public Use
  Company Number: US-TAKEDA-2018TUS013722

PATIENT

DRUGS (61)
  1. PROTONIX [Suspect]
     Active Substance: PANTOPRAZOLE SODIUM
     Dosage: 40 MG, UNK
     Route: 048
     Dates: start: 2010
  2. NEXIUM 24HR [Suspect]
     Active Substance: ESOMEPRAZOLE MAGNESIUM
     Dosage: 40 MILLIGRAM
     Route: 048
  3. MYLANTA [Concomitant]
     Active Substance: ALUMINUM HYDROXIDE\DIMETHICONE\MAGNESIUM HYDROXIDE
     Dosage: UNK
     Dates: start: 2003, end: 2005
  4. CALCIUM CARBONATE W/FAMOTIDINE/MAGNESIUM HYDR [Concomitant]
     Dosage: UNK
     Dates: start: 2005
  5. TRIAMTERENE. [Concomitant]
     Active Substance: TRIAMTERENE
     Dosage: UNK
     Dates: start: 2009
  6. CIPROFLOXACIN. [Concomitant]
     Active Substance: CIPROFLOXACIN
     Dosage: UNK
     Dates: start: 2016, end: 2017
  7. PEPCID COMPLETE OTC [Concomitant]
     Dosage: UNK
     Dates: start: 2005
  8. PREVACID [Suspect]
     Active Substance: LANSOPRAZOLE
     Dosage: 30 MG, UNK
     Route: 048
     Dates: start: 2009
  9. PROTONIX [Suspect]
     Active Substance: PANTOPRAZOLE SODIUM
     Dosage: 40 MG, UNK
     Route: 048
     Dates: start: 2000, end: 2005
  10. NEXIUM 24HR [Suspect]
     Active Substance: ESOMEPRAZOLE MAGNESIUM
     Indication: GASTROOESOPHAGEAL REFLUX DISEASE
     Dosage: UNK
     Route: 048
     Dates: start: 2005, end: 2009
  11. TUMS                               /00193601/ [Concomitant]
     Active Substance: CALCIUM CARBONATE\MAGNESIUM CARBONATE\MAGNESIUM TRISILICATE
     Dosage: UNK
     Dates: start: 2003, end: 2005
  12. ZANTAC 75 [Concomitant]
     Active Substance: RANITIDINE HYDROCHLORIDE
     Dosage: UNK
     Dates: start: 2005
  13. PEPTO-BISMOL [Concomitant]
     Active Substance: BISMUTH SUBSALICYLATE
     Dosage: UNK
     Dates: start: 2003, end: 2005
  14. LIPITOR [Concomitant]
     Active Substance: ATORVASTATIN CALCIUM
     Indication: BLOOD CHOLESTEROL DECREASED
     Dosage: UNK
     Dates: start: 2009
  15. LEVAQUIN [Concomitant]
     Active Substance: LEVOFLOXACIN
     Indication: BACTERIAL INFECTION
     Dosage: UNK
     Dates: start: 2009
  16. PREVACID [Suspect]
     Active Substance: LANSOPRAZOLE
     Indication: GASTROOESOPHAGEAL REFLUX DISEASE
     Dosage: 30 MG, UNK
     Route: 048
     Dates: start: 2002, end: 2009
  17. ALKA SELTZER                       /00002701/ [Concomitant]
     Active Substance: ASPIRIN
     Dosage: UNK
     Dates: start: 2003, end: 2005
  18. PEPCID COMPLETE                    /00706001/ [Concomitant]
     Dosage: UNK
     Dates: start: 2005
  19. PEPCID COMPLETE                    /01596501/ [Concomitant]
     Dosage: UNK
     Dates: start: 2005
  20. CIPROFLOXACIN. [Concomitant]
     Active Substance: CIPROFLOXACIN
     Dosage: UNK
     Dates: start: 2013, end: 2014
  21. PEPCID AC OTC [Concomitant]
     Dosage: UNK
     Dates: start: 2005
  22. PREVACID [Suspect]
     Active Substance: LANSOPRAZOLE
     Dosage: UNK
     Route: 048
     Dates: start: 1995
  23. PREVACID 24 HR [Suspect]
     Active Substance: LANSOPRAZOLE
     Dosage: 30 MG, UNK
     Route: 048
     Dates: start: 2005, end: 2009
  24. PEPCID AC [Concomitant]
     Active Substance: FAMOTIDINE
     Dosage: UNK
     Dates: start: 2005
  25. ZANTAC [Concomitant]
     Active Substance: RANITIDINE HYDROCHLORIDE
     Dosage: UNK
     Dates: start: 2005
  26. ALKA-SELTZER                       /00002701/ [Concomitant]
     Active Substance: ASPIRIN
     Dosage: UNK
     Dates: start: 2003, end: 2005
  27. ENALAPRIL [Concomitant]
     Active Substance: ENALAPRIL
     Indication: HYPERTENSION
     Dosage: UNK
     Dates: start: 2009, end: 2011
  28. AMOXICILLIN. [Concomitant]
     Active Substance: AMOXICILLIN
     Indication: BACTERIAL INFECTION
     Dosage: UNK
     Dates: start: 2013
  29. LOSARTAN. [Concomitant]
     Active Substance: LOSARTAN
     Indication: HYPERTENSION
     Dosage: UNK
     Dates: start: 2017
  30. ZANTAC 75 OTC [Concomitant]
     Dosage: UNK
     Dates: start: 2005
  31. PREVACID [Suspect]
     Active Substance: LANSOPRAZOLE
     Dosage: UNK
     Route: 048
     Dates: start: 1989, end: 2012
  32. PREVACID 24 HR [Suspect]
     Active Substance: LANSOPRAZOLE
     Indication: PRODUCT USED FOR UNKNOWN INDICATION
     Dosage: UNK
     Route: 048
     Dates: start: 1995
  33. PROTONIX [Suspect]
     Active Substance: PANTOPRAZOLE SODIUM
     Indication: PRODUCT USED FOR UNKNOWN INDICATION
     Dosage: UNK
     Route: 048
     Dates: start: 1995
  34. NEXIUM [Suspect]
     Active Substance: ESOMEPRAZOLE MAGNESIUM
     Indication: GASTROOESOPHAGEAL REFLUX DISEASE
     Dosage: 40 MILLIGRAM
     Route: 048
     Dates: start: 2011, end: 2012
  35. OMEPRAZOLE. [Suspect]
     Active Substance: OMEPRAZOLE
     Indication: GASTROOESOPHAGEAL REFLUX DISEASE
     Dosage: UNK
     Route: 048
     Dates: start: 2005, end: 2009
  36. ROLAIDS                            /00069401/ [Concomitant]
     Active Substance: DIHYDROXYALUMINUM SODIUM CARBONATE
     Dosage: UNK
     Dates: start: 2003, end: 2005
  37. MAALOX ANTACID [Concomitant]
     Active Substance: ALUMINUM HYDROXIDE\DIMETHICONE\MAGNESIUM HYDROXIDE
     Dosage: UNK
     Dates: start: 2003, end: 2005
  38. RANITIDINE HYDROCHLORIDE. [Concomitant]
     Active Substance: RANITIDINE HYDROCHLORIDE
     Dosage: UNK
     Dates: start: 2005
  39. GENTAMICIN. [Concomitant]
     Active Substance: GENTAMICIN
     Indication: SKIN INFECTION
     Dosage: UNK
     Dates: start: 2009, end: 2010
  40. AZITHROMYCIN ANHYDROUS. [Concomitant]
     Active Substance: AZITHROMYCIN ANHYDROUS
     Dosage: UNK
     Dates: start: 2015, end: 2016
  41. CIPROFLOXACIN. [Concomitant]
     Active Substance: CIPROFLOXACIN
     Dosage: UNK
     Dates: start: 2014
  42. PANTOPRAZOLE [Suspect]
     Active Substance: PANTOPRAZOLE
     Indication: PRODUCT USED FOR UNKNOWN INDICATION
     Dosage: 40 MG, UNK
     Route: 048
     Dates: start: 2015, end: 2016
  43. PRILOSEC [Suspect]
     Active Substance: OMEPRAZOLE MAGNESIUM
     Indication: GASTROOESOPHAGEAL REFLUX DISEASE
     Dosage: UNK
     Route: 048
     Dates: start: 1995, end: 2002
  44. FAMOTIDINE. [Concomitant]
     Active Substance: FAMOTIDINE
     Dosage: UNK
     Dates: start: 2005
  45. PEPTO-BISMOL [Concomitant]
     Active Substance: BISMUTH SUBSALICYLATE
     Dosage: UNK
     Dates: start: 2003, end: 2005
  46. AMOXICILLIN. [Concomitant]
     Active Substance: AMOXICILLIN
     Dosage: UNK
     Dates: start: 2015
  47. HYDRALAZINE [Concomitant]
     Active Substance: HYDRALAZINE HYDROCHLORIDE
     Indication: HYPERTENSION
     Dosage: UNK
     Dates: start: 2013, end: 2016
  48. LEVOFLOXACIN. [Concomitant]
     Active Substance: LEVOFLOXACIN
     Indication: BACTERIAL INFECTION
     Dosage: UNK
     Dates: start: 2016
  49. LANSOPRAZOLE. [Suspect]
     Active Substance: LANSOPRAZOLE
     Indication: GASTROOESOPHAGEAL REFLUX DISEASE
     Dosage: 30 MG, UNK
     Route: 048
     Dates: start: 2010, end: 2011
  50. NEXIUM 24HR [Suspect]
     Active Substance: ESOMEPRAZOLE MAGNESIUM
     Dosage: 40 MG, UNK
     Route: 048
  51. SIMVASTATIN. [Concomitant]
     Active Substance: SIMVASTATIN
     Indication: BLOOD CHOLESTEROL DECREASED
     Dosage: UNK
     Dates: start: 2009, end: 2017
  52. AMOXICILLIN. [Concomitant]
     Active Substance: AMOXICILLIN
     Indication: INFECTION
     Dosage: UNK
     Dates: start: 2011
  53. TRAMADOL. [Concomitant]
     Active Substance: TRAMADOL
     Indication: PAIN
     Dosage: UNK
     Dates: start: 2013
  54. LISINOPRIL. [Concomitant]
     Active Substance: LISINOPRIL
     Indication: HYPERTENSION
     Dosage: UNK
     Dates: start: 2013, end: 2015
  55. CIPROFLOXACIN. [Concomitant]
     Active Substance: CIPROFLOXACIN
     Indication: BACTERIAL INFECTION
     Dosage: UNK
     Dates: start: 2011
  56. ZANTAC 150 OTC [Concomitant]
     Dosage: UNK
     Dates: start: 2005
  57. ROLAIDS [Concomitant]
     Active Substance: CALCIUM CARBONATE\MAGNESIUM HYDROXIDE
     Dosage: UNK
     Dates: start: 2003, end: 2005
  58. PREVACID 24 HR [Suspect]
     Active Substance: LANSOPRAZOLE
     Dosage: 30 MG, UNK
     Route: 048
     Dates: start: 2009
  59. LANSOPRAZOLE. [Suspect]
     Active Substance: LANSOPRAZOLE
     Dosage: 30 MG, UNK
     Route: 048
     Dates: start: 2011
  60. FUROSEMIDE. [Concomitant]
     Active Substance: FUROSEMIDE
     Dosage: UNK
     Dates: start: 2009, end: 2014
  61. AZITHROMYCIN ANHYDROUS. [Concomitant]
     Active Substance: AZITHROMYCIN ANHYDROUS
     Indication: BACTERIAL INFECTION
     Dosage: UNK
     Dates: start: 2012

REACTIONS (4)
  - Acute kidney injury [Not Recovered/Not Resolved]
  - Chronic kidney disease [Not Recovered/Not Resolved]
  - Renal failure [Not Recovered/Not Resolved]
  - End stage renal disease [Not Recovered/Not Resolved]

NARRATIVE: CASE EVENT DATE: 2006
